FAERS Safety Report 24068978 (Version 2)
Quarter: 2024Q3

REPORT INFORMATION
  Report Type: Report from Study
  Country: US (occurrence: US)
  Receive Date: 20240710
  Receipt Date: 20240710
  Transmission Date: 20241016
  Serious: No
  Sender: ROCHE
  Company Number: US-ROCHE-3522872

PATIENT
  Age: 59 Year
  Sex: Female
  Weight: 77.11 kg

DRUGS (13)
  1. PHESGO [Suspect]
     Active Substance: HYALURONIDASE-ZZXF\PERTUZUMAB\TRASTUZUMAB
     Indication: Breast cancer female
     Dosage: DOSE REPORTED AS 1200MG-600MG-30,000 UNITS/15ML ;ONGOING: YES, SECOND INJECTION ON 19-MAR-2024.
     Route: 058
     Dates: start: 20240227
  2. PHESGO [Suspect]
     Active Substance: HYALURONIDASE-ZZXF\PERTUZUMAB\TRASTUZUMAB
     Indication: HER2 positive breast cancer
  3. TRASTUZUMAB [Suspect]
     Active Substance: TRASTUZUMAB
     Indication: Breast cancer
     Dosage: RECEIVED TOTAL OF 3 INFUSIONS
     Route: 042
     Dates: start: 202312
  4. XARELTO [Concomitant]
     Active Substance: RIVAROXABAN
     Route: 048
  5. COMPAZINE [Concomitant]
     Active Substance: PROCHLORPERAZINE MALEATE
     Indication: Nausea
     Dosage: EVERY 4-6 HOURS
     Route: 048
  6. ONDANSETRON [Concomitant]
     Active Substance: ONDANSETRON
     Indication: Nausea
     Dosage: EVERY 8 HOURS
     Route: 048
  7. RIVAROXABAN [Concomitant]
     Active Substance: RIVAROXABAN
     Dosage: EVERY 8 HOURS
     Route: 048
  8. AMLODIPINE [Concomitant]
     Active Substance: AMLODIPINE BESYLATE
  9. BUPROPION [Concomitant]
     Active Substance: BUPROPION
  10. CETIRIZINE HYDROCHLORIDE [Concomitant]
     Active Substance: CETIRIZINE HYDROCHLORIDE
  11. PANTOPRAZOLE [Concomitant]
     Active Substance: PANTOPRAZOLE
  12. ZOLOFT [Concomitant]
     Active Substance: SERTRALINE HYDROCHLORIDE
  13. OXYCODONE [Concomitant]
     Active Substance: OXYCODONE

REACTIONS (1)
  - Pain in extremity [Recovered/Resolved]

NARRATIVE: CASE EVENT DATE: 20240227
